FAERS Safety Report 7740893-3 (Version None)
Quarter: 2011Q3

REPORT INFORMATION
  Report Type: 
  Country: None (occurrence: None)
  Receive Date: 20110909
  Receipt Date: 20110907
  Transmission Date: 20111222
  Serious: Yes (Other)
  Sender: FDA-Public Use
  Company Number: CA-BAYER-2011-082537

PATIENT
  Age: 51 Year
  Sex: Female

DRUGS (1)
  1. GADAVIST [Suspect]
     Indication: NUCLEAR MAGNETIC RESONANCE IMAGING BREAST
     Dosage: 10 ML, ONCE
     Route: 042
     Dates: start: 20110825, end: 20110825

REACTIONS (5)
  - OEDEMA PERIPHERAL [None]
  - PRURITUS [None]
  - FEELING HOT [None]
  - URTICARIA [None]
  - RASH [None]
